FAERS Safety Report 6537668-X (Version None)
Quarter: 2010Q1

REPORT INFORMATION
  Report Type: 
  Country: None (occurrence: None)
  Receive Date: 20100114
  Receipt Date: 20100112
  Transmission Date: 20100710
  Serious: Yes (Hospitalization)
  Sender: FDA-Public Use
  Company Number: B0625541A

PATIENT
  Age: 61 Year
  Sex: Female

DRUGS (1)
  1. LAMICTAL [Suspect]
     Indication: DRUG USE FOR UNKNOWN INDICATION
     Dosage: 50MG TWICE PER DAY
     Route: 065
     Dates: start: 20091211, end: 20100110

REACTIONS (4)
  - BODY TEMPERATURE INCREASED [None]
  - FEELING ABNORMAL [None]
  - OEDEMA MOUTH [None]
  - RASH GENERALISED [None]
